FAERS Safety Report 5068806-6 (Version None)
Quarter: 2006Q3

REPORT INFORMATION
  Report Type: 
  Country: None (occurrence: None)
  Receive Date: 20060802
  Receipt Date: 20060410
  Transmission Date: 20061208
  Serious: No
  Sender: FDA-Public Use
  Company Number: US-BRISTOL-MYERS SQUIBB COMPANY-13341615

PATIENT
  Sex: Female

DRUGS (1)
  1. COUMADIN [Suspect]
     Route: 048
     Dates: start: 20060201

REACTIONS (4)
  - BLADDER CYST [None]
  - BLADDER PAIN [None]
  - POLLAKIURIA [None]
  - URINE OUTPUT INCREASED [None]
